FAERS Safety Report 8460130-4 (Version None)
Quarter: 2012Q2

REPORT INFORMATION
  Report Type: 
  Country: None (occurrence: None)
  Receive Date: 20120622
  Receipt Date: 20120618
  Transmission Date: 20120825
  Serious: Yes (Other)
  Sender: FDA-Public Use
  Company Number: US-PFIZER INC-2012019879

PATIENT
  Sex: Male
  Weight: 104 kg

DRUGS (6)
  1. LYRICA [Suspect]
     Indication: GOUT
     Dosage: UNK, ONCE/DAY
     Route: 048
     Dates: start: 20120109
  2. CLONIDINE [Concomitant]
     Indication: HYPERTENSION
     Dosage: 0.3 MG, 2X/DAY
  3. METOPROLOL [Concomitant]
     Dosage: 100 MG, 1X/DAY
  4. FUROSEMIDE [Concomitant]
     Dosage: 40 MG, 1X/DAY
  5. COLCHICINE [Concomitant]
     Indication: GOUT
     Dosage: 0.6 MG, UNK
  6. ACETYLSALICYLIC ACID [Concomitant]
     Dosage: 81 MG, 1X/DAY

REACTIONS (6)
  - ABNORMAL BEHAVIOUR [None]
  - BLOOD URIC ACID INCREASED [None]
  - DRY MOUTH [None]
  - MOOD ALTERED [None]
  - OEDEMA PERIPHERAL [None]
  - JOINT SWELLING [None]
